FAERS Safety Report 21614188 (Version 1)
Quarter: 2022Q4

REPORT INFORMATION
  Report Type: Spontaneous
  Country: US (occurrence: None)
  Receive Date: 20221117
  Receipt Date: 20221117
  Transmission Date: 20230113
  Serious: No
  Sender: FDA-Public Use
  Company Number: None

PATIENT
  Age: 43 Year
  Sex: Female
  Weight: 56.25 kg

DRUGS (9)
  1. ARAZLO [Suspect]
     Active Substance: TAZAROTENE
     Indication: Cyst
     Dosage: OTHER QUANTITY : 1 APPLICATION;?OTHER FREQUENCY : 2-3 TIMES A WEEK;?
     Route: 061
  2. HYDROCODONE [Concomitant]
     Active Substance: HYDROCODONE
  3. GABAPENTIN [Concomitant]
     Active Substance: GABAPENTIN
  4. sulfameth/ttime [Concomitant]
  5. LISINOPRIL [Concomitant]
     Active Substance: LISINOPRIL
  6. MONTELUKAST [Concomitant]
     Active Substance: MONTELUKAST SODIUM
  7. flticasone [Concomitant]
  8. BENADRYL [Concomitant]
     Active Substance: DIPHENHYDRAMINE HYDROCHLORIDE
  9. IBUPROFEN [Concomitant]
     Active Substance: IBUPROFEN

REACTIONS (1)
  - Skin cancer [None]

NARRATIVE: CASE EVENT DATE: 20221116
